FAERS Safety Report 6731642-6 (Version None)
Quarter: 2010Q2

REPORT INFORMATION
  Report Type: 
  Country: None (occurrence: None)
  Receive Date: 20100519
  Receipt Date: 20100506
  Transmission Date: 20101027
  Serious: Yes (Death, Life-Threatening, Hospitalization, Other)
  Sender: FDA-Public Use
  Company Number: US-JNJFOC-20071003696

PATIENT
  Sex: Male
  Weight: 69 kg

DRUGS (15)
  1. REMICADE [Suspect]
     Indication: INFLAMMATORY BOWEL DISEASE
     Dosage: 19 INFUSIONS ADMINISTERED BETWEEN 10-JUL-2002 AND 7-MAR-2006
     Route: 042
  2. REMICADE [Suspect]
     Indication: CROHN'S DISEASE
     Dosage: 19 INFUSIONS ADMINISTERED BETWEEN 10-JUL-2002 AND 7-MAR-2006
     Route: 042
  3. REMICADE [Suspect]
     Indication: COLITIS ULCERATIVE
     Dosage: 19 INFUSIONS ADMINISTERED BETWEEN 10-JUL-2002 AND 7-MAR-2006
     Route: 042
  4. HUMIRA [Suspect]
     Indication: IRRITABLE BOWEL SYNDROME
  5. HUMIRA [Suspect]
  6. HUMIRA [Suspect]
     Indication: COLITIS ULCERATIVE
  7. HUMIRA [Suspect]
  8. MERCAPTOPURINE [Suspect]
     Indication: INFLAMMATORY BOWEL DISEASE
     Dosage: ALSO REPORTED WITH START DATE OF 01-OCT-1999
  9. MERCAPTOPURINE [Suspect]
  10. MERCAPTOPURINE [Suspect]
     Indication: COLITIS ULCERATIVE
     Dosage: ALSO REPORTED WITH START DATE OF 01-OCT-1999
  11. MERCAPTOPURINE [Suspect]
  12. ASACOL [Concomitant]
  13. ASACOL [Concomitant]
  14. PREDNISONE [Concomitant]
     Indication: COLITIS ULCERATIVE
  15. PREDNISONE [Concomitant]
     Indication: INFLAMMATORY BOWEL DISEASE

REACTIONS (1)
  - HEPATOSPLENIC T-CELL LYMPHOMA [None]
